FAERS Safety Report 19271301 (Version 1)
Quarter: 2021Q2

REPORT INFORMATION
  Report Type: Spontaneous
  Country: US (occurrence: US)
  Receive Date: 20210518
  Receipt Date: 20210518
  Transmission Date: 20210717
  Serious: No
  Sender: FDA-Public Use
  Company Number: US-KYOWAKIRIN-2021BKK007526

PATIENT

DRUGS (4)
  1. SANCUSO [Suspect]
     Active Substance: GRANISETRON
     Dosage: UNK
     Route: 065
  2. PHENERGAN [DIBROMPROPAMIDINE ISETIONATE;PROMETHAZINE] [Concomitant]
     Indication: PRODUCT USED FOR UNKNOWN INDICATION
     Dosage: UNK
     Route: 065
  3. SANCUSO [Suspect]
     Active Substance: GRANISETRON
     Indication: PROPHYLAXIS OF NAUSEA AND VOMITING
     Dosage: 1 DF
     Route: 065
     Dates: start: 20210427, end: 20210427
  4. SANCUSO [Suspect]
     Active Substance: GRANISETRON
     Dosage: 1 DF
     Route: 065
     Dates: start: 20210428

REACTIONS (3)
  - Wrong technique in product usage process [Unknown]
  - Inappropriate schedule of product administration [Unknown]
  - Product adhesion issue [Unknown]

NARRATIVE: CASE EVENT DATE: 20210427
